FAERS Safety Report 15360127 (Version 1)
Quarter: 2018Q3

REPORT INFORMATION
  Report Type: Spontaneous
  Country: US (occurrence: US)
  Receive Date: 20180831
  Receipt Date: 20180831
  Transmission Date: 20181010
  Serious: Yes (Disabling)
  Sender: FDA-Public Use
  Company Number: None

PATIENT
  Age: 71 Year
  Sex: Female
  Weight: 53.55 kg

DRUGS (11)
  1. BUNAVAIL [Suspect]
     Active Substance: BUPRENORPHINE HYDROCHLORIDE\NALOXONE HYDROCHLORIDE DIHYDRATE
     Indication: PAIN
     Dosage: QUANTITY:1 FILM;OTHER ROUTE:DISSOLVE INSIDE CHEEK?
  2. HYDRALAZINE [Concomitant]
     Active Substance: HYDRALAZINE HYDROCHLORIDE
  3. OMEGA 3 FISH OIL [Concomitant]
     Active Substance: FISH OIL\OMEGA-3 FATTY ACIDS
  4. TIZANIDINE. [Concomitant]
     Active Substance: TIZANIDINE
  5. METOPROLOL. [Concomitant]
     Active Substance: METOPROLOL
  6. TYLENOL [Concomitant]
     Active Substance: ACETAMINOPHEN
  7. AMOXICILLIN. [Concomitant]
     Active Substance: AMOXICILLIN
  8. ^BABY ASPIRIN^ [Concomitant]
     Active Substance: ASPIRIN
  9. CLONIDINE. [Concomitant]
     Active Substance: CLONIDINE
  10. LORAZEPAM. [Concomitant]
     Active Substance: LORAZEPAM
  11. RANITIDINE. [Concomitant]
     Active Substance: RANITIDINE

REACTIONS (8)
  - Tooth loss [None]
  - Drug dependence [None]
  - Headache [None]
  - Constipation [None]
  - Tongue blistering [None]
  - Abdominal discomfort [None]
  - Vision blurred [None]
  - Urine output decreased [None]

NARRATIVE: CASE EVENT DATE: 20180701
